FAERS Safety Report 10031674 (Version 3)
Quarter: 2014Q2

REPORT INFORMATION
  Report Type: Spontaneous
  Country: US (occurrence: US)
  Receive Date: 20140324
  Receipt Date: 20140602
  Transmission Date: 20141212
  Serious: No
  Sender: FDA-Public Use
  Company Number: US-PFIZER INC-2014082249

PATIENT
  Age: 61 Year
  Sex: Female
  Weight: 86.17 kg

DRUGS (12)
  1. CELEBREX [Suspect]
     Indication: RHEUMATOID ARTHRITIS
     Dosage: 200 MG, 2X/DAY
     Route: 048
     Dates: start: 1998, end: 201401
  2. CELEBREX [Suspect]
     Indication: ARTHRALGIA
  3. CELEBREX [Suspect]
     Indication: SPINAL PAIN
  4. NEURONTIN [Suspect]
     Indication: ARTHRALGIA
     Dosage: 600 MG, 3X/DAY
     Route: 048
     Dates: start: 20110105
  5. NEURONTIN [Suspect]
     Indication: SPINAL PAIN
  6. MS CONTIN [Concomitant]
     Dosage: UNK
  7. SOMA [Concomitant]
     Dosage: UNK
  8. PRO-AIR [Concomitant]
     Dosage: UNK
  9. OXYCODONE [Concomitant]
     Dosage: UNK
  10. FLEXERIL [Concomitant]
     Dosage: UNK
  11. BUPROPION [Concomitant]
     Dosage: UNK
  12. ZAFIRLUKAST [Concomitant]
     Dosage: UNK

REACTIONS (3)
  - Limb discomfort [Unknown]
  - Hypoaesthesia [Unknown]
  - Pain in extremity [Unknown]
